FAERS Safety Report 25575244 (Version 1)
Quarter: 2025Q3

REPORT INFORMATION
  Report Type: Spontaneous
  Country: EU (occurrence: EU)
  Receive Date: 20250718
  Receipt Date: 20250718
  Transmission Date: 20251020
  Serious: Yes (Hospitalization, Other)
  Sender: SANDOZ
  Company Number: EU-SA-2018SA256048

PATIENT
  Age: 75 Year
  Sex: Female
  Weight: 45 kg

DRUGS (17)
  1. AMPHOTERICIN B [Suspect]
     Active Substance: AMPHOTERICIN B
     Indication: Aspergillus infection
     Route: 042
  2. AMPHOTERICIN B [Suspect]
     Active Substance: AMPHOTERICIN B
     Indication: Cerebral aspergillosis
  3. OMEPRAZOLE [Suspect]
     Active Substance: OMEPRAZOLE
     Indication: Drug interaction
     Route: 065
  4. TACROLIMUS [Suspect]
     Active Substance: TACROLIMUS
     Indication: Renal transplant
     Route: 065
  5. TACROLIMUS [Suspect]
     Active Substance: TACROLIMUS
     Indication: Immunosuppressant drug therapy
  6. VORICONAZOLE [Suspect]
     Active Substance: VORICONAZOLE
     Indication: Aspergillus infection
     Dosage: 200 MG, BID
     Route: 065
  7. VORICONAZOLE [Suspect]
     Active Substance: VORICONAZOLE
     Dosage: 300 MG, TID (SEVERAL DOSAGE ADAPTATION OVER A PERIOD OF AROUND 50 DAYS. DOSAGE RANGE : MIN 200MG BID
     Route: 042
  8. VORICONAZOLE [Suspect]
     Active Substance: VORICONAZOLE
     Dosage: 350 MG, BID
     Route: 065
  9. VORICONAZOLE [Suspect]
     Active Substance: VORICONAZOLE
     Dosage: 400 MILLIGRAM, ONCE A DAY
     Route: 065
  10. VORICONAZOLE [Suspect]
     Active Substance: VORICONAZOLE
     Indication: Cerebral aspergillosis
     Dosage: 400 MG, BID (SEVERAL DOSAGE ADAPTATION OVER A PERIOD OF AROUND 150 DAYS. DOSAGE RANGE : MIN 250MG QD
     Route: 048
  11. VORICONAZOLE [Suspect]
     Active Substance: VORICONAZOLE
     Dosage: 350 MILLIGRAM, TWO TIMES A DAY
     Route: 065
  12. VORICONAZOLE [Suspect]
     Active Substance: VORICONAZOLE
     Dosage: INFERIOR TO 1 MG/LITER
     Route: 065
  13. VORICONAZOLE [Suspect]
     Active Substance: VORICONAZOLE
     Dosage: 8 MG/KG, BID
     Route: 065
  14. VORICONAZOLE [Suspect]
     Active Substance: VORICONAZOLE
     Route: 065
  15. AMPHOTERICIN B [Concomitant]
     Active Substance: AMPHOTERICIN B
     Indication: Cerebral aspergillosis
     Route: 065
  16. ISAVUCONAZOLE [Concomitant]
     Active Substance: ISAVUCONAZOLE
     Indication: Product used for unknown indication
     Dosage: 200 MILLIGRAM, ONCE A DAY
     Route: 065
  17. ISAVUCONAZOLE [Concomitant]
     Active Substance: ISAVUCONAZOLE
     Dosage: 300 MILLIGRAM, ONCE A DAY
     Route: 065

REACTIONS (11)
  - IIIrd nerve paralysis [Recovering/Resolving]
  - Cerebral aspergillosis [Recovering/Resolving]
  - Acute sinusitis [Unknown]
  - Hemiparesis [Recovering/Resolving]
  - Renal failure [Unknown]
  - Carotid artery aneurysm [Unknown]
  - Hallucination, visual [Unknown]
  - Drug level below therapeutic [Not Recovered/Not Resolved]
  - Treatment failure [Recovered/Resolved]
  - Prescribed overdose [Unknown]
  - Off label use [Unknown]
